FAERS Safety Report 4371257-0 (Version None)
Quarter: 2004Q2

REPORT INFORMATION
  Report Type: 
  Country: None (occurrence: None)
  Receive Date: 20040603
  Receipt Date: 20040519
  Transmission Date: 20050107
  Serious: Yes (Other)
  Sender: FDA-Public Use
  Company Number: 2004214343US

PATIENT
  Age: 78 Year
  Sex: Male

DRUGS (2)
  1. ZYVOX [Suspect]
     Indication: ENTEROCOCCAL INFECTION
     Dosage: 600 MG, BID, IV
     Route: 042
  2. LEVOFLOXACIN [Concomitant]

REACTIONS (7)
  - CANDIDIASIS [None]
  - CHILLS [None]
  - ESCHERICHIA INFECTION [None]
  - FUNGAL PERITONITIS [None]
  - GLYCOPEPTIDE ANTIBIOTIC RESISTANT ENTEROCOCCAL INFECTION [None]
  - PERITONEAL FLUID ANALYSIS ABNORMAL [None]
  - THROMBOCYTOPENIA [None]
